FAERS Safety Report 6493741-6 (Version None)
Quarter: 2009Q4

REPORT INFORMATION
  Report Type: 
  Country: None (occurrence: None)
  Receive Date: 20091214
  Receipt Date: 20081205
  Transmission Date: 20100525
  Serious: Yes (Other)
  Sender: FDA-Public Use
  Company Number: US-BRISTOL-MYERS SQUIBB COMPANY-13923974

PATIENT
  Age: 54 Year
  Sex: Male
  Weight: 91 kg

DRUGS (4)
  1. ABILIFY [Suspect]
     Indication: SCHIZOPHRENIA
     Dosage: INTIAL DOSE 15MG,2TABS DAILY,LAST DOSE 5MG TABS,3DAILY
     Dates: start: 20060701, end: 20070701
  2. ATENOLOL [Concomitant]
     Dosage: DOSE INCREASED TO 100MG ONCE DAILY
  3. ATENOLOL [Concomitant]
  4. PRILOSEC [Concomitant]

REACTIONS (3)
  - BLOOD PRESSURE INCREASED [None]
  - DIABETES MELLITUS [None]
  - NAUSEA [None]
